FAERS Safety Report 5024852-X (Version None)
Quarter: 2006Q2

REPORT INFORMATION
  Report Type: 
  Country: None (occurrence: None)
  Receive Date: 20060426
  Receipt Date: 20060114
  Transmission Date: 20061013
  Serious: Yes (Other)
  Sender: FDA-Public Use
  Company Number: 2006009380

PATIENT
  Age: 75 Year
  Sex: Female
  Weight: 61.2356 kg

DRUGS (5)
  1. LYRICA [Suspect]
     Indication: PAIN
     Dosage: 150 MG (75 MG,2 IN 1 D), ORAL
     Route: 048
     Dates: start: 20060113, end: 20060114
  2. PREVACID [Concomitant]
  3. TOPROL-XL [Concomitant]
  4. VITAMIN C (VITAMIN C) [Concomitant]
  5. MULTIVITAMIN [Concomitant]

REACTIONS (3)
  - DIZZINESS [None]
  - DRUG INEFFECTIVE [None]
  - FEELING ABNORMAL [None]
